FAERS Safety Report 8353187-2 (Version None)
Quarter: 2012Q2

REPORT INFORMATION
  Report Type: 
  Country: None (occurrence: None)
  Receive Date: 20120511
  Receipt Date: 20120504
  Transmission Date: 20120825
  Serious: Yes (Hospitalization)
  Sender: FDA-Public Use
  Company Number: DE-B.I. PHARMACEUTICALS,INC./RIDGEFIELD-2012-DE-01199DE

PATIENT
  Age: 81 Year
  Sex: Male
  Weight: 74 kg

DRUGS (7)
  1. PRADAXA [Suspect]
     Dosage: 150 MG
     Dates: start: 20120401
  2. LISINOPRIL [Concomitant]
  3. OMEPRAZOLE [Concomitant]
  4. PRADAXA [Suspect]
     Indication: ATRIAL FIBRILLATION
     Dosage: 220 MG
     Dates: start: 20120101, end: 20120401
  5. THYRONAIOD [Concomitant]
  6. AMIODARONE HCL [Concomitant]
  7. METOPROLOL TARTRATE [Concomitant]

REACTIONS (2)
  - BLOOD PRESSURE DECREASED [None]
  - HEART RATE DECREASED [None]
